FAERS Safety Report 8224924-2 (Version None)
Quarter: 2012Q1

REPORT INFORMATION
  Report Type: 
  Country: None (occurrence: None)
  Receive Date: 20120321
  Receipt Date: 20120313
  Transmission Date: 20120608
  Serious: Yes (Other)
  Sender: FDA-Public Use
  Company Number: GB-JNJFOC-20120111021

PATIENT
  Age: 28 Year
  Sex: Male

DRUGS (2)
  1. RISPERDAL [Suspect]
     Indication: PRODUCT USED FOR UNKNOWN INDICATION
     Dosage: 6-8 MG
     Route: 048
  2. RISPERDAL [Suspect]
     Route: 048

REACTIONS (3)
  - AGITATION [None]
  - BLOOD PROLACTIN INCREASED [None]
  - MASS [None]
